FAERS Safety Report 24936372 (Version 4)
Quarter: 2025Q3

REPORT INFORMATION
  Report Type: Spontaneous
  Country: US (occurrence: US)
  Receive Date: 20250206
  Receipt Date: 20250702
  Transmission Date: 20251020
  Serious: Yes (Hospitalization, Other)
  Sender: BAYER HEALTHCARE PHARMACEUTICALS INC.
  Company Number: US-BAYER-2025A013068

PATIENT
  Age: 77 Year
  Sex: Female

DRUGS (17)
  1. ADEMPAS [Suspect]
     Active Substance: RIOCIGUAT
     Indication: Pulmonary arterial hypertension
  2. ADEMPAS [Suspect]
     Active Substance: RIOCIGUAT
     Indication: Pulmonary arterial hypertension
     Dosage: 2.5 MG, TID
     Route: 048
     Dates: start: 20200923
  3. AMBRISENTAN [Concomitant]
     Active Substance: AMBRISENTAN
  4. LEVOTHYROXINE [Concomitant]
     Active Substance: LEVOTHYROXINE
  5. FUROSEMIDE [Concomitant]
     Active Substance: FUROSEMIDE
  6. AZULFIDINE [Concomitant]
     Active Substance: SULFASALAZINE
  7. ONDANSETRON [Concomitant]
     Active Substance: ONDANSETRON
  8. OXYCODONE [Concomitant]
     Active Substance: OXYCODONE
  9. ATORVASTATIN [Concomitant]
     Active Substance: ATORVASTATIN
  10. FERROUS SULFATE [Concomitant]
     Active Substance: FERROUS SULFATE
  11. VITAMIN C [Concomitant]
     Active Substance: ASCORBIC ACID
  12. OMEPRAZOLE [Concomitant]
     Active Substance: OMEPRAZOLE
  13. ATENOLOL [Concomitant]
     Active Substance: ATENOLOL
  14. BUDESONIDE [Concomitant]
     Active Substance: BUDESONIDE
  15. CICLOPIROX [Concomitant]
     Active Substance: CICLOPIROX
  16. NITROGLYCERIN [Concomitant]
     Active Substance: NITROGLYCERIN
  17. IMODIUM [Concomitant]
     Active Substance: LOPERAMIDE HYDROCHLORIDE

REACTIONS (15)
  - Small intestinal obstruction [Recovering/Resolving]
  - Nausea [Recovering/Resolving]
  - Vomiting [Recovering/Resolving]
  - Diarrhoea [Not Recovered/Not Resolved]
  - Enteritis [None]
  - Nausea [None]
  - Vomiting [None]
  - Constipation [None]
  - Abdominal pain [None]
  - Nausea [None]
  - Vomiting [None]
  - Diarrhoea [None]
  - Gastroenteritis [None]
  - Colitis [None]
  - Diarrhoea [None]

NARRATIVE: CASE EVENT DATE: 20250104
